FAERS Safety Report 6150876-5 (Version None)
Quarter: 2009Q2

REPORT INFORMATION
  Report Type: 
  Country: None (occurrence: None)
  Receive Date: 20090406
  Receipt Date: 20090320
  Transmission Date: 20091009
  Serious: Yes (Death)
  Sender: FDA-Public Use
  Company Number: THYM-1000962

PATIENT

DRUGS (1)
  1. THYMOGLOBULIN [Suspect]
     Indication: ORGAN TRANSPLANT
     Dosage: 130 MG, INTRAVENOUS
     Route: 042
     Dates: start: 20090319

REACTIONS (1)
  - HYPERTENSION [None]
